FAERS Safety Report 19902683 (Version 1)
Quarter: 2021Q3

REPORT INFORMATION
  Report Type: Spontaneous
  Country: TR (occurrence: TR)
  Receive Date: 20210930
  Receipt Date: 20210930
  Transmission Date: 20211014
  Serious: Yes (Hospitalization, Other)
  Sender: FDA-Public Use
  Company Number: TR-ALVOGEN-2021-ALVOGEN-117600

PATIENT
  Age: 36 Year
  Sex: Female

DRUGS (2)
  1. FENTANYL. [Suspect]
     Active Substance: FENTANYL
     Indication: EPIDURAL ANAESTHESIA
     Dosage: 27?GAUGE NEEDLE
     Route: 008
  2. BUPIVACAINE. [Suspect]
     Active Substance: BUPIVACAINE
     Indication: EPIDURAL ANAESTHESIA
     Dosage: 27?GAUGE NEEDLE
     Route: 008

REACTIONS (4)
  - Maternal exposure during delivery [Recovering/Resolving]
  - Haemorrhagic stroke [Recovering/Resolving]
  - Haemorrhage [Recovering/Resolving]
  - Thalamus haemorrhage [Recovering/Resolving]
